FAERS Safety Report 8915148 (Version 1)
Quarter: 2012Q4

REPORT INFORMATION
  Report Type: 
  Country: US (occurrence: US)
  Receive Date: 20121119
  Receipt Date: 20121119
  Transmission Date: 20130627
  Serious: No
  Sender: FDA-Public Use
  Company Number: US-ASTRAZENECA-2012SE84144

PATIENT
  Sex: Female

DRUGS (1)
  1. ACCOLATE [Suspect]
     Dosage: Dose and frequency unknown.
     Route: 048
     Dates: start: 1997

REACTIONS (2)
  - Coeliac disease [Unknown]
  - Hypersensitivity [Unknown]
